FAERS Safety Report 6540164-7 (Version None)
Quarter: 2010Q1

REPORT INFORMATION
  Report Type: 
  Country: None (occurrence: None)
  Receive Date: 20100115
  Receipt Date: 20100111
  Transmission Date: 20100710
  Serious: Yes (Life-Threatening, Hospitalization, Other)
  Sender: FDA-Public Use
  Company Number: CA-ASTRAZENECA-2007UW23961

PATIENT
  Age: 40 Year
  Sex: Female
  Weight: 99.8 kg

DRUGS (1)
  1. CRESTOR [Suspect]
     Route: 048

REACTIONS (8)
  - ASTHENIA [None]
  - BLOOD CREATINE PHOSPHOKINASE INCREASED [None]
  - BLOOD CREATININE INCREASED [None]
  - HYPERCALCAEMIA [None]
  - MYALGIA [None]
  - MYOSITIS [None]
  - RENAL FAILURE [None]
  - RHABDOMYOLYSIS [None]
